FAERS Safety Report 6376562-4 (Version None)
Quarter: 2009Q3

REPORT INFORMATION
  Report Type: 
  Country: None (occurrence: None)
  Receive Date: 20090925
  Receipt Date: 20090914
  Transmission Date: 20100115
  Serious: Yes (Other)
  Sender: FDA-Public Use
  Company Number: DE-PFIZER INC-2009268206

PATIENT
  Age: 78 Year

DRUGS (4)
  1. LYRICA [Suspect]
     Indication: HERPES ZOSTER
     Dosage: 150 MG, 3X/DAY
     Route: 048
     Dates: start: 20090701, end: 20090909
  2. VERAMEX - SLOW RELEASE [Concomitant]
     Dosage: TWICE DAILY 1/2 NOS
  3. SPIRONOLACTONE [Concomitant]
     Dosage: EVERY 2ND DAY 1/2 NOS
  4. TILIDINE [Concomitant]
     Route: 048

REACTIONS (5)
  - DIARRHOEA [None]
  - DRUG WITHDRAWAL SYNDROME [None]
  - HEPATIC CIRRHOSIS [None]
  - NAUSEA [None]
  - PAIN [None]
